FAERS Safety Report 26006949 (Version 1)
Quarter: 2025Q4

REPORT INFORMATION
  Report Type: Spontaneous
  Country: CN (occurrence: CN)
  Receive Date: 20251106
  Receipt Date: 20251106
  Transmission Date: 20260117
  Serious: Yes (Hospitalization)
  Sender: PFIZER
  Company Number: CN-PFIZER INC-PV202500129422

PATIENT
  Age: 66 Year
  Sex: Male
  Weight: 63.5 kg

DRUGS (2)
  1. VFEND [Suspect]
     Active Substance: VORICONAZOLE
     Indication: Bronchopulmonary aspergillosis
     Dosage: 400 MG, 2X/DAY (FIRST DAY)
     Route: 041
     Dates: start: 20251015, end: 20251015
  2. VFEND [Suspect]
     Active Substance: VORICONAZOLE
     Dosage: 200 MG, 2X/DAY (MAINTENANCE DOSE)
     Route: 041
     Dates: start: 20251016, end: 20251029

REACTIONS (3)
  - Neurological symptom [Recovering/Resolving]
  - Sleep talking [Recovering/Resolving]
  - Disorganised speech [Recovering/Resolving]

NARRATIVE: CASE EVENT DATE: 20251015
